FAERS Safety Report 5041966-9 (Version None)
Quarter: 2006Q2

REPORT INFORMATION
  Report Type: 
  Country: None (occurrence: None)
  Receive Date: 20060630
  Receipt Date: 20060615
  Transmission Date: 20061013
  Serious: Yes (Other)
  Sender: FDA-Public Use
  Company Number: US-2006-015519

PATIENT
  Age: 53 Year
  Sex: Male

DRUGS (3)
  1. FLUDARA [Suspect]
     Indication: BONE MARROW CONDITIONING REGIMEN
     Dosage: 125 MG/M2, INTRAVENOUS
     Route: 042
  2. CYCLOPHOSPHAMIDE [Suspect]
     Indication: BONE MARROW CONDITIONING REGIMEN
     Dosage: 120MG/KG
  3. CYCLOSPORINE [Concomitant]

REACTIONS (6)
  - BASAL CELL CARCINOMA [None]
  - GRAFT VERSUS HOST DISEASE [None]
  - GRAFT VERSUS HOST DISEASE IN SKIN [None]
  - MALIGNANT MELANOMA [None]
  - ORAL MUCOSAL DISORDER [None]
  - STEM CELL TRANSPLANT [None]
